FAERS Safety Report 5308179-4 (Version None)
Quarter: 2007Q2

REPORT INFORMATION
  Report Type: 
  Country: None (occurrence: None)
  Receive Date: 20070426
  Receipt Date: 20070423
  Transmission Date: 20071010
  Serious: Yes (Other)
  Sender: FDA-Public Use
  Company Number: PHBS2007JP07132

PATIENT
  Sex: Female

DRUGS (2)
  1. LOXONIN [Concomitant]
     Route: 048
  2. VOLTAREN [Suspect]
     Indication: PAIN
     Dosage: 50 MG/DAY
     Route: 054

REACTIONS (1)
  - PANIC ATTACK [None]
